FAERS Safety Report 13746856 (Version 2)
Quarter: 2018Q1

REPORT INFORMATION
  Report Type: Spontaneous
  Country: US (occurrence: US)
  Receive Date: 20170712
  Receipt Date: 20180130
  Transmission Date: 20180508
  Serious: No
  Sender: FDA-Public Use
  Company Number: US-ACTELION-A-NJ2017-156437

PATIENT
  Age: 61 Year
  Sex: Female

DRUGS (1)
  1. VALCHLOR [Suspect]
     Active Substance: MECHLORETHAMINE
     Indication: MYCOSIS FUNGOIDES
     Dosage: UNK, THIN FILM TO AFFECTED SKIN, QD
     Route: 061
     Dates: start: 201706

REACTIONS (3)
  - Skin irritation [Unknown]
  - Erythema [Unknown]
  - Application site dermatitis [Unknown]
